FAERS Safety Report 5789506-0 (Version None)
Quarter: 2008Q2

REPORT INFORMATION
  Report Type: 
  Country: None (occurrence: None)
  Receive Date: 20080618
  Receipt Date: 20080410
  Transmission Date: 20081010
  Serious: Yes (Other)
  Sender: FDA-Public Use
  Company Number: 200810979US

PATIENT
  Age: 63 Year
  Sex: Male

DRUGS (3)
  1. LANTUS [Suspect]
     Indication: TYPE 2 DIABETES MELLITUS
     Dosage: 67 U QPM INJ
     Dates: start: 20070101
  2. OPTICLIK [Suspect]
     Indication: TYPE 2 DIABETES MELLITUS
  3. HUMALOG [Concomitant]

REACTIONS (6)
  - BLOOD GLUCOSE INCREASED [None]
  - DEPRESSED LEVEL OF CONSCIOUSNESS [None]
  - FEELING ABNORMAL [None]
  - HYPOGLYCAEMIA [None]
  - PALPITATIONS [None]
  - VISION BLURRED [None]
